FAERS Safety Report 8174134-2 (Version None)
Quarter: 2012Q1

REPORT INFORMATION
  Report Type: 
  Country: None (occurrence: None)
  Receive Date: 20120229
  Receipt Date: 20120215
  Transmission Date: 20120608
  Serious: Yes (Hospitalization, Other)
  Sender: FDA-Public Use
  Company Number: BR-ROCHE-730666

PATIENT
  Sex: Female
  Weight: 67 kg

DRUGS (21)
  1. VITAMIN D [Concomitant]
  2. DIAMICRON [Concomitant]
  3. FOLIC ACID [Concomitant]
  4. ALPRAZOLAM [Concomitant]
     Dosage: 0.5 MG AT NIGHT
  5. MABTHERA [Suspect]
     Indication: RHEUMATOID ARTHRITIS
     Dosage: ROUTE: ENDOVENOUS, FORM: INFUSION, DOSE:500 MG/50 ML, FREQUENCY: 1000 MG EACH INFUSION
     Route: 042
     Dates: start: 20091120, end: 20091204
  6. PREDNISOLONE [Suspect]
     Indication: PRODUCT USED FOR UNKNOWN INDICATION
     Route: 065
  7. ATENOLOL [Concomitant]
  8. MABTHERA [Suspect]
     Dosage: ROUTE: ENDOVENOUS, FORM: INFUSION, DOSE:500 MG/50 ML, FREQUENCY: 1000 MG EACH INFUSION.
     Route: 042
     Dates: start: 20100905, end: 20110719
  9. BENERVA [Concomitant]
     Dosage: ONE TABLET A DAY
  10. PRELONE [Concomitant]
  11. MABTHERA [Suspect]
     Dosage: ROUTE: ENDOVENOUS, FORM: INFUSION, DOSE:500 MG/50 ML, FREQUENCY: 1000 MG EACH INFUSION
     Route: 042
     Dates: start: 20100325, end: 20100526
  12. ATENOLOL [Concomitant]
  13. METFORMIN HYDROCHLORIDE [Concomitant]
  14. ALPRAZOLAM [Concomitant]
     Indication: SLEEP DISORDER THERAPY
  15. ALPRAZOLAM [Concomitant]
  16. METHOTREXATE [Concomitant]
     Indication: RHEUMATOID ARTHRITIS
  17. GALVUS [Concomitant]
     Indication: APHTHOUS STOMATITIS
     Dosage: DRUG REPORTED AS GALVUS MET (VILDAGLIPTIN + METFORMIN) 50 MG + 500 MG
  18. FLUOXETINE [Concomitant]
     Indication: ANXIETY
     Dosage: 20 MG IN THE MORINIG
  19. OSTEONUTRI [Concomitant]
     Indication: OSTEOPOROSIS
  20. DIAMICRON [Concomitant]
     Dosage: 02 TABLETS IN THE MORNING
  21. PREDNISOLONE [Concomitant]

REACTIONS (11)
  - PNEUMONIA [None]
  - DEPRESSED MOOD [None]
  - ARTHROPATHY [None]
  - PAIN [None]
  - MALAISE [None]
  - JOINT DISLOCATION [None]
  - BLOOD CREATINE PHOSPHOKINASE INCREASED [None]
  - FALL [None]
  - ABDOMINAL DISTENSION [None]
  - ARTHRALGIA [None]
  - ABDOMINAL DISCOMFORT [None]
